FAERS Safety Report 4359690-4 (Version None)
Quarter: 2004Q2

REPORT INFORMATION
  Report Type: 
  Country: None (occurrence: None)
  Receive Date: 20040513
  Receipt Date: 20040504
  Transmission Date: 20050107
  Serious: Yes (Hospitalization)
  Sender: FDA-Public Use
  Company Number: 2004212160FR

PATIENT
  Age: 31 Year
  Sex: Female

DRUGS (4)
  1. SOLU-MEDROL [Suspect]
     Dosage: 500 MG, CYCLIC, IV
     Route: 042
  2. CYCLOPHOSPHAMIDE [Suspect]
     Dosage: 1125 MG IN TOT 3 CYCLE, INTRAVENOUS
     Route: 042
     Dates: start: 20031107, end: 20031110
  3. UROMITEXAN(MESNA) [Suspect]
     Dosage: 675 MG IN TOT, 3 CYCLE, IV
     Route: 042
     Dates: start: 20031107, end: 20031110
  4. PRIMPERAN TAB [Suspect]
     Dosage: 25 MG, CYCLIC, IV
     Route: 042
     Dates: start: 20031107, end: 20031110

REACTIONS (3)
  - DERMATITIS EXFOLIATIVE [None]
  - EOSINOPHILIA [None]
  - TOXIC SKIN ERUPTION [None]
